FAERS Safety Report 11275731 (Version 1)
Quarter: 2015Q3

REPORT INFORMATION
  Report Type: Spontaneous
  Country: US (occurrence: US)
  Receive Date: 20150716
  Receipt Date: 20150716
  Transmission Date: 20151125
  Serious: No
  Sender: FDA-Public Use
  Company Number: US-009507513-1507USA005430

PATIENT
  Sex: Male

DRUGS (1)
  1. ZETIA [Suspect]
     Active Substance: EZETIMIBE
     Indication: BLOOD CHOLESTEROL INCREASED
     Dosage: SINGLE HALF TABLET, ONCE DAILY
     Route: 048

REACTIONS (3)
  - Wrong technique in product usage process [Unknown]
  - Tendon disorder [Not Recovered/Not Resolved]
  - Underdose [Unknown]
